FAERS Safety Report 8112207-0 (Version None)
Quarter: 2012Q1

REPORT INFORMATION
  Report Type: 
  Country: None (occurrence: None)
  Receive Date: 20120203
  Receipt Date: 20120127
  Transmission Date: 20120608
  Serious: Yes (Other)
  Sender: FDA-Public Use
  Company Number: CA-TEVA-319822USA

PATIENT
  Sex: Female

DRUGS (5)
  1. COPAXONE [Suspect]
     Indication: MULTIPLE SCLEROSIS
     Route: 058
     Dates: start: 20110402
  2. MAGNESIUM [Concomitant]
  3. CYANOCOBALAMIN [Concomitant]
  4. ERGOCALCIFEROL [Concomitant]
  5. CALCIUM-SANDOZ [Concomitant]

REACTIONS (1)
  - BRONCHOSPASM [None]
